FAERS Safety Report 8509849-7 (Version None)
Quarter: 2012Q3

REPORT INFORMATION
  Report Type: 
  Country: None (occurrence: None)
  Receive Date: 20120713
  Receipt Date: 20120703
  Transmission Date: 20120928
  Serious: No
  Sender: FDA-Public Use
  Company Number: US-ASTRAZENECA-2012SE41593

PATIENT
  Age: 61 Year
  Sex: Female

DRUGS (2)
  1. PROTONIX [Suspect]
     Route: 065
  2. NEXIUM [Suspect]
     Route: 048

REACTIONS (6)
  - DRUG DOSE OMISSION [None]
  - GASTRIC DISORDER [None]
  - HYPERCHLORHYDRIA [None]
  - VOMITING [None]
  - MALAISE [None]
  - PHARYNGEAL DISORDER [None]
